FAERS Safety Report 18303419 (Version 2)
Quarter: 2021Q1

REPORT INFORMATION
  Report Type: Spontaneous
  Country: US (occurrence: US)
  Receive Date: 20200923
  Receipt Date: 20210121
  Transmission Date: 20210419
  Serious: No
  Sender: FDA-Public Use
  Company Number: US-LUPIN PHARMACEUTICALS INC.-2020-04412

PATIENT
  Sex: Male
  Weight: 79.38 kg

DRUGS (6)
  1. NARDIL [Concomitant]
     Active Substance: PHENELZINE SULFATE
     Indication: OBSESSIVE-COMPULSIVE PERSONALITY DISORDER
     Dosage: 15 MILLIGRAM, QID, 15MG; TAKE TWO IN THE AM AND THEN ONE EVERY FOUR HOURS FOR TOTAL OF 4 DAILY BY MO
     Route: 048
  2. PHENELZINE TABLET [Suspect]
     Active Substance: PHENELZINE
     Indication: OBSESSIVE-COMPULSIVE DISORDER
  3. TRAZODONE [Concomitant]
     Active Substance: TRAZODONE HYDROCHLORIDE
     Indication: SLEEP DISORDER
     Dosage: 150 MILLIGRAM, QD (TAKE ONCE NIGHTLY)
     Route: 048
  4. PHENELZINE TABLET [Suspect]
     Active Substance: PHENELZINE
     Indication: SOCIAL ANXIETY DISORDER
     Dosage: 15 MILLIGRAM, QID (15MG; TAKE TWO IN THE AM AND THEN ONE EVERY FOUR HOURS FOR TOTAL OF 4 DAILY)
     Route: 048
     Dates: start: 20200724
  5. NARDIL [Concomitant]
     Active Substance: PHENELZINE SULFATE
     Indication: SOCIAL ANXIETY DISORDER
  6. ALPRAZOLAM. [Concomitant]
     Active Substance: ALPRAZOLAM
     Indication: ANXIETY
     Dosage: 5 MILLIGRAM, TAKE 5 TIMES DAILY (TAKING AROUND 25 YEARS)
     Route: 048

REACTIONS (4)
  - Drug ineffective [Unknown]
  - Abdominal discomfort [Unknown]
  - Product substitution issue [Unknown]
  - Feeling abnormal [Unknown]
